FAERS Safety Report 6022324-7 (Version None)
Quarter: 2008Q4

REPORT INFORMATION
  Report Type: 
  Country: None (occurrence: None)
  Receive Date: 20081230
  Receipt Date: 20081226
  Transmission Date: 20090506
  Serious: Yes (Death)
  Sender: FDA-Public Use
  Company Number: FR-BRISTOL-MYERS SQUIBB COMPANY-14455323

PATIENT
  Sex: Male

DRUGS (4)
  1. CISPLATIN [Suspect]
     Indication: TESTICULAR GERM CELL CANCER
     Route: 042
  2. ETOPOSIDE [Suspect]
     Indication: TESTICULAR GERM CELL CANCER
     Route: 042
  3. BLEOMYCIN SULFATE [Suspect]
     Indication: TESTICULAR GERM CELL CANCER
     Dosage: BLEOMYCIN, 15MG/WEEK/DAY, IM
     Route: 042
  4. VINBLASTINE SULFATE [Suspect]
     Indication: TESTICULAR GERM CELL CANCER
     Route: 042

REACTIONS (4)
  - DEATH [None]
  - HAEMATOTOXICITY [None]
  - MUCOSAL INFLAMMATION [None]
  - NEUROTOXICITY [None]
